FAERS Safety Report 4838269-1 (Version None)
Quarter: 2005Q4

REPORT INFORMATION
  Report Type: 
  Country: None (occurrence: None)
  Receive Date: 20051123
  Receipt Date: 20051111
  Transmission Date: 20060501
  Serious: Yes (Death, Life-Threatening)
  Sender: FDA-Public Use
  Company Number: 2005155876

PATIENT
  Sex: Male
  Weight: 97 kg

DRUGS (35)
  1. ZYVOX [Suspect]
     Indication: SEPSIS
     Dosage: 600 MG (600 MG, DAILY), INTRAVENOUS
     Route: 042
     Dates: start: 20050928, end: 20051002
  2. NOREPIN (NOREPINEPHRINE) [Concomitant]
  3. PACKED RED CELLS (RED BLOOD CELLS) [Concomitant]
  4. HEPARIN [Concomitant]
  5. INSULIN [Concomitant]
  6. VERAPAMIL [Concomitant]
  7. KATAMINE (KATAMINE) [Concomitant]
  8. PROPOFOL [Concomitant]
  9. AMIODARONE HCL [Concomitant]
  10. FUROSEMIDE [Concomitant]
  11. MEROPENEM (MEROPENEM) [Concomitant]
  12. METRONIDAZOLE [Concomitant]
  13. DIPYRONE TAB [Concomitant]
  14. PARACETAMOL (PARACETAMOL) [Concomitant]
  15. HYDROCORTISONE [Concomitant]
  16. PANTOPRAZOL (PANTOPRAZOLE) [Concomitant]
  17. METOCLOPRAMIDE [Concomitant]
  18. MEPERIDINE HCL [Concomitant]
  19. ACETYLCYSTEINE [Concomitant]
  20. ADENOSINE [Concomitant]
  21. MIDAZOLAME (MIDAZOLAM) [Concomitant]
  22. HYDROCODON (DIHYDROCODEINE BITARTRATE) [Concomitant]
  23. DIAZEPAM [Concomitant]
  24. NYSTATINE (NYSTATIN) [Concomitant]
  25. EPINEPHRINE [Concomitant]
  26. DOBUTAMIN (DOBUTAMINE) [Concomitant]
  27. SUFENTANIL (SUFENTANIL) [Concomitant]
  28. CIPROFLOXACIN [Concomitant]
  29. ROCURONIUM (ROCURONIUM) [Concomitant]
  30. PLATELET CONCENTRATES (PLATELETS, HUMAN BLOOD) [Concomitant]
  31. CEFTRIAXONE [Concomitant]
  32. ERYTHROMYCIN [Concomitant]
  33. TAZOBAC (PIPERACILLIN SODIUM, TAZOBACTAM SODIUM) [Concomitant]
  34. LENOGRASTIM (LENOGRASTIM) [Concomitant]
  35. INFUSIONS (VITAMINS, ELECTROLYTES, AMINOACIDS) (GENERAL NUTRIENTS) [Concomitant]

REACTIONS (4)
  - LEUKOPENIA [None]
  - MULTI-ORGAN FAILURE [None]
  - SEPTIC SHOCK [None]
  - THROMBOCYTOPENIA [None]
